FAERS Safety Report 4748168-1 (Version None)
Quarter: 2005Q3

REPORT INFORMATION
  Report Type: 
  Country: None (occurrence: None)
  Receive Date: 20050818
  Receipt Date: 20050624
  Transmission Date: 20060218
  Serious: Yes (Hospitalization)
  Sender: FDA-Public Use
  Company Number: US-ROCHE-408805

PATIENT
  Age: 46 Year
  Sex: Female
  Weight: 70.8 kg

DRUGS (21)
  1. PEG-INTERFERON ALFA 2A (RO 25-8310) [Suspect]
     Indication: HEPATITIS C
     Dosage: DATE OF LAST DOSE PRIOR TO SAE WAS REPORTED AS 15 JUNE 2005.
     Route: 058
     Dates: start: 20050526, end: 20050623
  2. PEG-INTERFERON ALFA 2A (RO 25-8310) [Suspect]
     Route: 058
     Dates: start: 20050718
  3. PEG-INTERFERON ALFA 2A (RO 25-8310) [Suspect]
     Route: 058
     Dates: start: 20050804
  4. RIBAVIRIN [Suspect]
     Indication: HEPATITIS C
     Dosage: DATE OF LAST DOSE PRIOR TO SAE WAS REPORTED AS 21 JUNE 2005.
     Route: 048
     Dates: start: 20050526, end: 20050624
  5. RIBAVIRIN [Suspect]
     Route: 048
     Dates: start: 20050718
  6. RANITIDINE HCL [Concomitant]
     Dates: start: 20041110, end: 20050626
  7. HYDROCHLOROTHIAZIDE [Concomitant]
     Dates: start: 20041209, end: 20050623
  8. METOPROLOL [Concomitant]
     Dates: start: 20041216, end: 20050626
  9. SEROQUEL [Concomitant]
     Dates: start: 20050112
  10. NORVASC [Concomitant]
     Dates: start: 20050118, end: 20050626
  11. FENTANYL [Concomitant]
     Dates: start: 20050112
  12. ATIVAN [Concomitant]
     Dates: start: 20050112
  13. MAGNESIUM OXIDE [Concomitant]
     Dates: start: 20050301
  14. CALCIUM GLUCONATE [Concomitant]
     Dates: start: 20050301
  15. ACTIGALL [Concomitant]
     Dates: start: 20050301
  16. OXAZEPAM [Concomitant]
     Dates: start: 20050301
  17. TRICOR [Concomitant]
     Dates: start: 20050315
  18. LEVOXYL [Concomitant]
     Dates: start: 20050315
  19. PREDNISONE [Concomitant]
     Dates: start: 20050330
  20. BACTRIM [Concomitant]
     Dates: start: 20050419
  21. PROGRAF [Concomitant]
     Dates: start: 20050422

REACTIONS (13)
  - AGITATION [None]
  - ASTHENIA [None]
  - CHEST PAIN [None]
  - DEHYDRATION [None]
  - DIARRHOEA [None]
  - DIZZINESS [None]
  - HYPOTENSION [None]
  - NAUSEA [None]
  - RENAL FAILURE ACUTE [None]
  - SINUS BRADYCARDIA [None]
  - SYNCOPE [None]
  - VENTRICULAR EXTRASYSTOLES [None]
  - VOMITING [None]
